FAERS Safety Report 4494378-0 (Version None)
Quarter: 2004Q4

REPORT INFORMATION
  Report Type: 
  Country: None (occurrence: None)
  Receive Date: 20041102
  Receipt Date: 20041027
  Transmission Date: 20050328
  Serious: Yes (Death, Life-Threatening, Hospitalization)
  Sender: FDA-Public Use
  Company Number: EWC041041030

PATIENT
  Age: 64 Year
  Sex: Female
  Weight: 55 kg

DRUGS (12)
  1. GEMCITABINE HYDROCHLORIDE-IV (GEMCITABINE) [Suspect]
     Indication: NON-SMALL CELL LUNG CANCER
     Dosage: 1250 MG/M2/L OTHER
     Route: 050
     Dates: start: 20040929
  2. CISPLATIN [Concomitant]
  3. TRAMADOL HCL [Concomitant]
  4. EDNYT (ENALAPARIL MALEATE) [Concomitant]
  5. TRENTAL [Concomitant]
  6. XANAX (ALPRAZOLAM DUM) [Concomitant]
  7. FUROSEMIDE [Concomitant]
  8. K CL TAB [Concomitant]
  9. MILURIT (ALLOPRUINOL) [Concomitant]
  10. RETAFYLLIN (THEOPHYLLINE) [Concomitant]
  11. VOLTAREN-XR [Concomitant]
  12. GEMCITABINE HYDROCHLORIDE-IV [Suspect]

REACTIONS (8)
  - AZOTAEMIA [None]
  - BLOOD POTASSIUM INCREASED [None]
  - BLOOD UREA INCREASED [None]
  - CREATININE RENAL CLEARANCE INCREASED [None]
  - HYPOXIA [None]
  - LOSS OF CONSCIOUSNESS [None]
  - METASTASES TO CENTRAL NERVOUS SYSTEM [None]
  - RESPIRATION ABNORMAL [None]
